FAERS Safety Report 6407844-5 (Version None)
Quarter: 2009Q4

REPORT INFORMATION
  Report Type: 
  Country: None (occurrence: None)
  Receive Date: 20091015
  Receipt Date: 20091005
  Transmission Date: 20100525
  Serious: Yes (Death, Hospitalization)
  Sender: FDA-Public Use
  Company Number: FABR-1000898

PATIENT
  Age: 47 Year
  Sex: Male
  Weight: 69 kg

DRUGS (4)
  1. FABRAZYME [Suspect]
     Indication: FABRY'S DISEASE
     Dosage: 70 MG, Q2W, INTRAVENOUS
     Route: 042
     Dates: start: 20050501
  2. FABRAZYME [Suspect]
  3. ACETAMINOPHEN [Concomitant]
  4. BENADRYL [Concomitant]

REACTIONS (4)
  - GASTROINTESTINAL DISORDER [None]
  - INTRACRANIAL ANEURYSM [None]
  - PNEUMONIA [None]
  - RENAL FAILURE [None]
